FAERS Safety Report 9044913 (Version 1)
Quarter: 2013Q1

REPORT INFORMATION
  Report Type: Report from Study
  Country: JP (occurrence: JP)
  Receive Date: 20130130
  Receipt Date: 20130130
  Transmission Date: 20140127
  Serious: Yes (Other)
  Sender: FDA-Public Use
  Company Number: JP-GLAXOSMITHKLINE-B0860680A

PATIENT
  Age: 18 None
  Sex: Male
  Weight: 50 kg

DRUGS (22)
  1. ARRANON [Suspect]
     Indication: T-CELL TYPE ACUTE LEUKAEMIA
     Dosage: 650MGM2 PER DAY
     Route: 042
     Dates: start: 20110927, end: 20110929
  2. ARRANON [Suspect]
     Indication: T-CELL TYPE ACUTE LEUKAEMIA
     Dosage: 650MGM2 PER DAY
     Route: 042
     Dates: start: 20111028, end: 20111030
  3. ARRANON [Suspect]
     Indication: T-CELL TYPE ACUTE LEUKAEMIA
     Dosage: 650MGM2 PER DAY
     Route: 042
     Dates: start: 20111118, end: 20111122
  4. LASTET [Concomitant]
     Indication: NEOPLASM MALIGNANT
     Route: 042
     Dates: start: 20110527, end: 20110527
  5. ENDOXAN [Concomitant]
     Indication: NEOPLASM MALIGNANT
     Dates: start: 20110528, end: 20110529
  6. METHOTREXATE [Concomitant]
     Indication: NEOPLASM MALIGNANT
     Dates: start: 20110926, end: 20110926
  7. CYLOCIDE [Concomitant]
     Indication: NEOPLASM MALIGNANT
     Dates: start: 20110926, end: 20110926
  8. PREDONINE [Concomitant]
     Indication: NEOPLASM MALIGNANT
     Dates: start: 20110926, end: 20110926
  9. RASBURICASE [Concomitant]
     Route: 042
     Dates: start: 20110927, end: 20111002
  10. DIAMOX [Concomitant]
     Dates: start: 20110927, end: 20111001
  11. FIRSTCIN [Concomitant]
     Route: 042
     Dates: start: 20110927, end: 20110928
  12. CLINDAMYCIN PHOSPHATE [Concomitant]
     Dates: start: 20110928, end: 20111006
  13. ZOVIRAX [Concomitant]
     Route: 042
     Dates: start: 20111003, end: 20111007
  14. ZOVIRAX [Concomitant]
     Route: 042
     Dates: start: 20111123, end: 20120210
  15. GASTER [Concomitant]
     Dates: start: 20110930, end: 20111005
  16. GASTER [Concomitant]
     Dates: start: 20120112, end: 20120120
  17. ZOSYN [Concomitant]
     Dates: start: 20111109, end: 20111114
  18. ZOSYN [Concomitant]
     Dates: start: 20111209, end: 20111213
  19. FLUMARIN [Concomitant]
     Route: 042
     Dates: start: 20111214, end: 20111223
  20. FUROSEMIDE [Concomitant]
     Route: 042
     Dates: start: 20111229, end: 20120311
  21. ROCEPHIN [Concomitant]
     Dates: start: 20120106, end: 20120113
  22. NEUART [Concomitant]
     Route: 042
     Dates: start: 20120125, end: 20120125

REACTIONS (14)
  - Hypogammaglobulinaemia [Recovered/Resolved]
  - Urinary retention [Recovering/Resolving]
  - Haematochezia [Recovering/Resolving]
  - Hypernatraemia [Recovered/Resolved]
  - Hyponatraemia [Recovered/Resolved]
  - Febrile neutropenia [Recovered/Resolved]
  - Muscular weakness [Recovering/Resolving]
  - Faecal incontinence [Recovering/Resolving]
  - Pleural effusion [Recovering/Resolving]
  - Diarrhoea [Recovering/Resolving]
  - Febrile neutropenia [Recovering/Resolving]
  - Anaemia [Recovered/Resolved]
  - Platelet count decreased [Recovered/Resolved]
  - White blood cell count decreased [Recovered/Resolved]
